FAERS Safety Report 23777010 (Version 1)
Quarter: 2024Q2

REPORT INFORMATION
  Report Type: Spontaneous
  Country: MA (occurrence: MA)
  Receive Date: 20240424
  Receipt Date: 20240424
  Transmission Date: 20240716
  Serious: Yes (Hospitalization, Other)
  Sender: FDA-Public Use
  Company Number: MA-862174955-ML2024-02477

PATIENT
  Age: 28 Year
  Sex: Female

DRUGS (1)
  1. MISOPROSTOL [Suspect]
     Active Substance: MISOPROSTOL
     Indication: Abortion
     Route: 048

REACTIONS (4)
  - Pneumoperitoneum [Recovered/Resolved]
  - Ascites [Recovered/Resolved]
  - Uterine rupture [Recovered/Resolved]
  - Exposure during pregnancy [Unknown]
